FAERS Safety Report 4520342-9 (Version None)
Quarter: 2004Q4

REPORT INFORMATION
  Report Type: 
  Country: None (occurrence: None)
  Receive Date: 20041207
  Receipt Date: 20041129
  Transmission Date: 20050328
  Serious: Yes (Hospitalization)
  Sender: FDA-Public Use
  Company Number: FR-GLAXOSMITHKLINE-B0358408A

PATIENT
  Age: 69 Year
  Sex: Male
  Weight: 83 kg

DRUGS (5)
  1. CLAMOXYL [Suspect]
     Indication: ABNORMAL FAECES
     Dosage: 500MG SIX TIMES PER DAY
     Route: 048
     Dates: start: 20041001, end: 20041018
  2. ZELITREX [Suspect]
     Dosage: 500MG PER DAY
     Route: 048
     Dates: start: 20041003
  3. CIPROFLOXACIN [Suspect]
     Indication: ABNORMAL FAECES
     Dosage: 1G PER DAY
     Route: 048
     Dates: start: 20041011, end: 20041018
  4. ZYVOXID [Suspect]
     Indication: ABNORMAL FAECES
     Dosage: 600MG TWICE PER DAY
     Route: 048
     Dates: start: 20041007, end: 20041018
  5. OFLOCET [Concomitant]
     Indication: ABNORMAL FAECES
     Route: 065
     Dates: start: 20041003, end: 20041007

REACTIONS (2)
  - CONVULSION [None]
  - STATUS EPILEPTICUS [None]
